FAERS Safety Report 5033848-3 (Version None)
Quarter: 2006Q2

REPORT INFORMATION
  Report Type: 
  Country: None (occurrence: None)
  Receive Date: 20060623
  Receipt Date: 20060210
  Transmission Date: 20061013
  Serious: Yes (Hospitalization, Disabling)
  Sender: FDA-Public Use
  Company Number: HQWYE793414FEB06

PATIENT
  Sex: Male
  Weight: 54 kg

DRUGS (24)
  1. ENBREL [Suspect]
     Indication: RHEUMATOID ARTHRITIS
     Route: 058
     Dates: start: 20051129, end: 20060314
  2. LASIX [Suspect]
     Indication: PLEURAL EFFUSION
     Dosage: 20 MG AT UNKNOWN FREQUENCY
     Route: 048
     Dates: start: 20051215, end: 20051227
  3. GASMOTIN [Concomitant]
     Dosage: UNKNOWN
     Route: 048
  4. TEPRENONE [Concomitant]
     Dosage: UNKNOWN
     Route: 048
  5. TAKEPRON [Concomitant]
     Dosage: UNKNOWN
     Route: 048
  6. LANDEL [Concomitant]
     Dosage: UNKNOWN
     Route: 048
  7. CALCITRIOL [Concomitant]
     Dosage: UNKNOWN
     Route: 048
  8. CALCIUM LACTATE [Concomitant]
     Dosage: UNKNOWN
     Route: 048
  9. BIOFERMIN [Concomitant]
     Dosage: UNKNOWN
     Route: 048
  10. ISCOTIN [Concomitant]
     Dosage: UNKNOWN
     Route: 048
  11. PYRIDOXAL PHOSPHATE [Concomitant]
     Dosage: UNKNOWN
     Route: 048
  12. GRIMAC [Concomitant]
     Dosage: UNKNOWN
     Route: 048
  13. BACTRIM [Concomitant]
     Dosage: UNKNOWN
     Route: 048
  14. EBRANTIL [Concomitant]
     Dosage: UNKNOWN
     Route: 048
  15. NITRODERM [Concomitant]
  16. SODIUM BICARBONATE [Concomitant]
     Dosage: UNKNOWN
     Route: 048
  17. ALLOPURINOL [Concomitant]
     Dosage: UNKNOWN
     Route: 048
  18. PREDONINE [Concomitant]
     Indication: RHEUMATOID ARTHRITIS
     Dosage: UNKNOWN
     Route: 048
     Dates: end: 20050101
  19. PREDONINE [Concomitant]
     Dosage: REDUCED TO 10 MG AT UNKNOWN FREQUENCY
     Route: 048
     Dates: start: 20050101
  20. DIMETHYL SULFOXIDE [Concomitant]
  21. ALBUMIN (HUMAN) [Concomitant]
     Dosage: UNKNOWN
     Route: 042
  22. SANDOGLOBULIN [Concomitant]
     Dosage: UNKNOWN
     Route: 041
  23. NEO DOPASTON [Concomitant]
     Dosage: UNKNOWN
     Route: 048
  24. ADALAT - SLOW RELEASE [Concomitant]
     Dosage: UNKNOWN
     Route: 048

REACTIONS (3)
  - CONDITION AGGRAVATED [None]
  - PLEURAL EFFUSION [None]
  - RENAL FAILURE [None]
